FAERS Safety Report 7370391-0 (Version None)
Quarter: 2011Q1

REPORT INFORMATION
  Report Type: 
  Country: None (occurrence: None)
  Receive Date: 20110323
  Receipt Date: 20110318
  Transmission Date: 20110831
  Serious: Yes (Hospitalization)
  Sender: FDA-Public Use
  Company Number: US-B.I. PHARMACEUTICALS,INC./RIDGEFIELD-2011-BP-02810BP

PATIENT
  Sex: Male

DRUGS (5)
  1. COREG [Concomitant]
     Dosage: 3.125 MG
  2. CARDIZEM CD [Concomitant]
     Dosage: 240 MG
  3. CELEXA [Concomitant]
     Dosage: 20 MG
  4. PRADAXA [Suspect]
     Indication: ATRIAL FIBRILLATION
     Dosage: 300 MG
     Route: 048
  5. ZOCOR [Concomitant]
     Dosage: 20 MG

REACTIONS (2)
  - OEDEMA PERIPHERAL [None]
  - DEEP VEIN THROMBOSIS [None]
